FAERS Safety Report 9679576 (Version 1)
Quarter: 2013Q4

REPORT INFORMATION
  Report Type: Spontaneous
  Country: US (occurrence: US)
  Receive Date: 20131109
  Receipt Date: 20131109
  Transmission Date: 20140711
  Serious: No
  Sender: FDA-Public Use
  Company Number: US-SA-2013SA099468

PATIENT
  Age: 40 Year
  Sex: Male

DRUGS (1)
  1. ALLEGRA-D [Suspect]
     Indication: HYPERSENSITIVITY
     Dosage: 180 MG/240 MG DAILY
     Route: 048

REACTIONS (2)
  - Therapeutic response decreased [Unknown]
  - Extra dose administered [Unknown]
